FAERS Safety Report 21282079 (Version 2)
Quarter: 2022Q4

REPORT INFORMATION
  Report Type: Report from Study
  Country: US (occurrence: US)
  Receive Date: 20220901
  Receipt Date: 20221006
  Transmission Date: 20230113
  Serious: No
  Sender: FDA-Public Use
  Company Number: US-ABBVIE-22K-163-4455281-00

PATIENT
  Sex: Female

DRUGS (3)
  1. HUMIRA [Suspect]
     Active Substance: ADALIMUMAB
     Indication: Temporomandibular joint syndrome
     Route: 058
     Dates: end: 202111
  2. HUMIRA [Suspect]
     Active Substance: ADALIMUMAB
     Indication: Arthralgia
  3. OTEZLA [Suspect]
     Active Substance: APREMILAST
     Indication: Product used for unknown indication
     Dosage: DOSE 30 MG AND 0.5 DAYS
     Route: 048
     Dates: start: 202111

REACTIONS (9)
  - Psoriasis [Unknown]
  - Hypersensitivity [Unknown]
  - Temporomandibular joint syndrome [Unknown]
  - Musculoskeletal stiffness [Unknown]
  - Blister [Unknown]
  - Arthropathy [Unknown]
  - Asthma [Unknown]
  - Pain [Unknown]
  - Therapeutic product effect incomplete [Unknown]
